FAERS Safety Report 7637420-8 (Version None)
Quarter: 2011Q3

REPORT INFORMATION
  Report Type: 
  Country: None (occurrence: None)
  Receive Date: 20110726
  Receipt Date: 20110721
  Transmission Date: 20111222
  Serious: No
  Sender: FDA-Public Use
  Company Number: US-PFIZER INC-2011166403

PATIENT
  Sex: Female
  Weight: 65.76 kg

DRUGS (5)
  1. INSPRA [Concomitant]
     Dosage: UNK
  2. AVAPRO [Concomitant]
     Dosage: UNK
  3. NORVASC [Concomitant]
     Dosage: UNK
  4. AMLODIPINE BESYLATE [Suspect]
     Indication: HYPERTENSION
     Dosage: 5 MG, 1X/DAY
     Route: 048
     Dates: start: 20110715, end: 20110719
  5. TOPROL-XL [Concomitant]
     Dosage: UNK

REACTIONS (3)
  - THERAPEUTIC RESPONSE UNEXPECTED [None]
  - FEELING ABNORMAL [None]
  - MALAISE [None]
